FAERS Safety Report 11905674 (Version 3)
Quarter: 2016Q2

REPORT INFORMATION
  Report Type: Spontaneous
  Country: FR (occurrence: FR)
  Receive Date: 20160110
  Receipt Date: 20160408
  Transmission Date: 20160815
  Serious: Yes (Hospitalization)
  Sender: FDA-Public Use
  Company Number: FR-TEVA-623673ISR

PATIENT
  Age: 56 Year
  Sex: Female

DRUGS (8)
  1. TRISENOX [Suspect]
     Active Substance: ARSENIC TRIOXIDE
     Indication: ACUTE MYELOID LEUKAEMIA
     Dosage: 15.3 MILLIGRAM DAILY; FIRST COURSE
     Route: 042
     Dates: start: 20150525
  2. VESANOID [Suspect]
     Active Substance: TRETINOIN
     Dosage: 100 MILLIGRAM DAILY; THIRD COURSE
     Route: 048
     Dates: start: 20150907
  3. VESANOID [Suspect]
     Active Substance: TRETINOIN
     Dosage: 100 MILLIGRAM DAILY; SECOND COURSE
     Route: 048
     Dates: start: 20150715
  4. TRISENOX [Suspect]
     Active Substance: ARSENIC TRIOXIDE
     Dosage: 15.3 MILLIGRAM DAILY; SECOND COURSE
     Route: 042
     Dates: start: 20150715
  5. TRISENOX [Suspect]
     Active Substance: ARSENIC TRIOXIDE
     Dosage: 15.3 MILLIGRAM DAILY; FOURTH COURSE
     Route: 042
     Dates: start: 20151102, end: 20151117
  6. VESANOID [Suspect]
     Active Substance: TRETINOIN
     Indication: ACUTE MYELOID LEUKAEMIA
     Dosage: 100 MILLIGRAM DAILY; FIRST COURSE
     Route: 048
     Dates: start: 20150526
  7. VESANOID [Suspect]
     Active Substance: TRETINOIN
     Dosage: 100 MILLIGRAM DAILY; FOURTH COURSE
     Route: 048
     Dates: start: 20151102, end: 20151117
  8. TRISENOX [Suspect]
     Active Substance: ARSENIC TRIOXIDE
     Dosage: 15.3 MILLIGRAM DAILY; THIRD COURSE
     Route: 042
     Dates: start: 20150907

REACTIONS (1)
  - Proctitis [Recovered/Resolved with Sequelae]

NARRATIVE: CASE EVENT DATE: 20151117
